FAERS Safety Report 10357909 (Version 4)
Quarter: 2015Q3

REPORT INFORMATION
  Report Type: Spontaneous
  Country: US (occurrence: US)
  Receive Date: 20140801
  Receipt Date: 20150714
  Transmission Date: 20151125
  Serious: Yes (Hospitalization, Other)
  Sender: FDA-Public Use
  Company Number: US-GLAXOSMITHKLINE-A1083604A

PATIENT
  Age: 79 Year
  Sex: Male

DRUGS (3)
  1. VOTRIENT [Suspect]
     Active Substance: PAZOPANIB HYDROCHLORIDE
     Indication: HEPATIC CANCER
     Dosage: UNK
     Dates: start: 20140326
  2. VOTRIENT [Suspect]
     Active Substance: PAZOPANIB HYDROCHLORIDE
     Dosage: 200 MG, QD
     Dates: start: 20140328
  3. VOTRIENT [Suspect]
     Active Substance: PAZOPANIB HYDROCHLORIDE
     Indication: RENAL CELL CARCINOMA
     Dosage: 400 MG, 1D
     Route: 065
     Dates: start: 20140326

REACTIONS (8)
  - Confusional state [Recovered/Resolved]
  - Hyponatraemia [Unknown]
  - Haemoptysis [Unknown]
  - Speech disorder [Recovered/Resolved]
  - Cerebrovascular accident [Recovered/Resolved]
  - Cough [Unknown]
  - Visual impairment [Recovered/Resolved]
  - Transient ischaemic attack [Recovered/Resolved]

NARRATIVE: CASE EVENT DATE: 20150707
